FAERS Safety Report 19163743 (Version 1)
Quarter: 2021Q2

REPORT INFORMATION
  Report Type: Spontaneous
  Country: US (occurrence: US)
  Receive Date: 20210421
  Receipt Date: 20210421
  Transmission Date: 20210717
  Serious: Yes (Death, Other)
  Sender: FDA-Public Use
  Company Number: US-SA-2021SA130153

PATIENT
  Age: 47 Year
  Sex: Male

DRUGS (1)
  1. ZANTAC [Suspect]
     Active Substance: RANITIDINE HYDROCHLORIDE
     Indication: GASTROOESOPHAGEAL REFLUX DISEASE
     Dosage: 150 MG, QD
     Dates: start: 201001, end: 201803

REACTIONS (3)
  - Gastric cancer stage IV [Fatal]
  - Gastrointestinal carcinoma [Fatal]
  - Bladder cancer stage IV [Unknown]

NARRATIVE: CASE EVENT DATE: 20180305
